FAERS Safety Report 19926748 (Version 1)
Quarter: 2021Q4

REPORT INFORMATION
  Report Type: Spontaneous
  Country: US (occurrence: US)
  Receive Date: 20211006
  Receipt Date: 20211006
  Transmission Date: 20220303
  Serious: Yes (Other)
  Sender: FDA-Public Use
  Company Number: US-FRESENIUS MEDICAL CARE RENAL THERAPIES GROUP-FMC-2109-001401

PATIENT
  Age: 77 Year
  Sex: Female
  Weight: 65.5 kg

DRUGS (3)
  1. DELFLEX WITH DEXTROSE 1.5% LOW MAGNESIUM LOW CALCIUM [Suspect]
     Active Substance: CALCIUM CHLORIDE\DEXTROSE\MAGNESIUM CHLORIDE\SODIUM CHLORIDE\SODIUM LACTATE
     Indication: End stage renal disease
     Dosage: TIDAL FILL = 1600 ML, EXCHANGES = 4, FILL VOLUME = 1700 ML, DWELL TIME = 1.25 HOURS, LAST FILL = N/A
     Route: 033
     Dates: start: 20190917
  2. DELFLEX WITH DEXTROSE 2.5% LOW MAGNESIUM LOW CALCIUM [Suspect]
     Active Substance: CALCIUM CHLORIDE\DEXTROSE\MAGNESIUM CHLORIDE\SODIUM CHLORIDE\SODIUM LACTATE
     Indication: End stage renal disease
     Dosage: TIDAL FILL = 1600 ML, EXCHANGES = 4, FILL VOLUME = 1700 ML, DWELL TIME = 1.25 HOURS, LAST FILL = N/A
     Route: 033
     Dates: start: 20190917
  3. DELFLEX WITH DEXTROSE 4.25% LOW MAGNESIUM LOW CALCIUM [Suspect]
     Active Substance: CALCIUM CHLORIDE\DEXTROSE\MAGNESIUM CHLORIDE\SODIUM CHLORIDE\SODIUM LACTATE
     Indication: End stage renal disease
     Dosage: TIDAL FILL = 1600 ML, EXCHANGES = 4, FILL VOLUME = 1700 ML, DWELL TIME = 1.25 HOURS, LAST FILL = N/A
     Route: 033
     Dates: start: 20190917

REACTIONS (2)
  - Peritonitis bacterial [Unknown]
  - Constipation [Not Recovered/Not Resolved]
